FAERS Safety Report 9320633 (Version 2)
Quarter: 2013Q2

REPORT INFORMATION
  Report Type: Spontaneous
  Country: US (occurrence: US)
  Receive Date: 20130531
  Receipt Date: 20130626
  Transmission Date: 20140414
  Serious: Yes (Hospitalization)
  Sender: FDA-Public Use
  Company Number: US-009507513-1305USA014829

PATIENT
  Age: 45 Year
  Sex: Male

DRUGS (10)
  1. VICTRELIS [Suspect]
     Indication: HEPATITIS C
     Dosage: 800 MG, TID
     Route: 048
     Dates: start: 20130412, end: 20130416
  2. VICTRELIS [Suspect]
     Dosage: 800 MG, TID
     Route: 048
     Dates: start: 20130418, end: 20130418
  3. REBETOL [Suspect]
     Indication: HEPATITIS C
     Dosage: UNK
     Route: 048
     Dates: end: 20130416
  4. REBETOL [Suspect]
     Dosage: UNK
     Route: 048
     Dates: start: 20130418, end: 20130430
  5. PEGASYS [Suspect]
     Indication: HEPATITIS C
     Dosage: UNK
     Dates: end: 20130416
  6. PEGASYS [Suspect]
     Dosage: UNK
     Dates: start: 20130418, end: 20130418
  7. PEGASYS [Suspect]
     Dosage: UNK
     Dates: start: 20130419, end: 20130430
  8. URSODIOL [Concomitant]
  9. PRILOSEC OTC [Concomitant]
  10. LOSARTAN POTASSIUM TABLETS [Concomitant]

REACTIONS (3)
  - Colitis ulcerative [Unknown]
  - Abdominal pain [Unknown]
  - Abdominal pain [Unknown]
